FAERS Safety Report 6718700-7 (Version None)
Quarter: 2010Q2

REPORT INFORMATION
  Report Type: 
  Country: None (occurrence: None)
  Receive Date: 20100507
  Receipt Date: 20100422
  Transmission Date: 20101027
  Serious: Yes (Other)
  Sender: FDA-Public Use
  Company Number: A-NJ2009-30986

PATIENT
  Age: 30 Year
  Sex: Female
  Weight: 89.3 kg

DRUGS (12)
  1. TRACLEER [Suspect]
     Indication: PULMONARY ARTERIAL HYPERTENSION
     Dosage: ORAL ; ORAL
     Route: 048
     Dates: start: 20080626, end: 20091111
  2. TRACLEER [Suspect]
     Indication: PULMONARY ARTERIAL HYPERTENSION
     Dosage: ORAL ; ORAL
     Route: 048
     Dates: start: 20091127, end: 20091216
  3. TRACLEER [Suspect]
  4. REMODULIN [Concomitant]
  5. PROCARDIA [Concomitant]
  6. LOVENOX [Concomitant]
  7. LORTAB [Concomitant]
  8. PHENERGAN (PROMETHAZINE) [Concomitant]
  9. LASIX [Concomitant]
  10. KEFLEX [Concomitant]
  11. PRILOSEC (OMEPRAZOLE) [Concomitant]
  12. POTASSIUM (POTASSIUM) [Concomitant]

REACTIONS (2)
  - DRUG EXPOSURE DURING PREGNANCY [None]
  - PREGNANCY [None]
